FAERS Safety Report 5887140-5 (Version None)
Quarter: 2008Q3

REPORT INFORMATION
  Report Type: 
  Country: None (occurrence: None)
  Receive Date: 20080917
  Receipt Date: 20080905
  Transmission Date: 20090109
  Serious: Yes (Other)
  Sender: FDA-Public Use
  Company Number: US-PFIZER INC-2008074796

PATIENT
  Age: 41 Year
  Sex: Female
  Weight: 77.1 kg

DRUGS (3)
  1. CHANTIX [Suspect]
     Indication: SMOKING CESSATION THERAPY
     Dates: start: 20080822, end: 20080830
  2. MUSCLE RELAXANTS [Concomitant]
  3. DRUG, UNSPECIFIED [Concomitant]

REACTIONS (24)
  - ABDOMINAL PAIN [None]
  - BED REST [None]
  - CARDIAC DISORDER [None]
  - CHEST PAIN [None]
  - DIARRHOEA [None]
  - DISTURBANCE IN ATTENTION [None]
  - DIZZINESS [None]
  - DYSPHONIA [None]
  - DYSPNOEA [None]
  - EPISTAXIS [None]
  - EYE SWELLING [None]
  - FATIGUE [None]
  - HEADACHE [None]
  - HYPERSENSITIVITY [None]
  - IMPAIRED DRIVING ABILITY [None]
  - MALAISE [None]
  - MEDICATION ERROR [None]
  - NAUSEA [None]
  - OVERDOSE [None]
  - PAIN IN EXTREMITY [None]
  - PHARYNGEAL OEDEMA [None]
  - RASH [None]
  - SWELLING [None]
  - THROAT IRRITATION [None]
